FAERS Safety Report 5019396-5 (Version None)
Quarter: 2006Q2

REPORT INFORMATION
  Report Type: 
  Country: None (occurrence: None)
  Receive Date: 20060530
  Receipt Date: 20060517
  Transmission Date: 20061013
  Serious: Yes (Other)
  Sender: FDA-Public Use
  Company Number: 200612566BWH

PATIENT
  Age: 69 Year
  Sex: Female
  Weight: 68.0396 kg

DRUGS (1)
  1. SORAFENIB [Suspect]
     Indication: METASTATIC RENAL CELL CARCINOMA
     Dosage: 600 MG, TOTAL DAILY, ORAL
     Route: 048
     Dates: start: 20050921

REACTIONS (2)
  - ALOPECIA [None]
  - CLOSTRIDIUM DIFFICILE COLITIS [None]
